FAERS Safety Report 7715549-3 (Version None)
Quarter: 2011Q3

REPORT INFORMATION
  Report Type: 
  Country: None (occurrence: None)
  Receive Date: 20110829
  Receipt Date: 20110822
  Transmission Date: 20111222
  Serious: Yes (Other)
  Sender: FDA-Public Use
  Company Number: US-JNJFOC-20110810471

PATIENT
  Sex: Male
  Weight: 79.38 kg

DRUGS (3)
  1. ACETAMINOPHEN [Concomitant]
  2. INFLIXIMAB, RECOMBINANT [Suspect]
     Indication: CROHN'S DISEASE
     Dosage: 25 INFUSIONS
     Route: 042
     Dates: start: 20020711, end: 20070703
  3. ANTIHISTAMINES [Concomitant]

REACTIONS (1)
  - SKIN CANCER [None]
